FAERS Safety Report 4374841-3 (Version None)
Quarter: 2004Q2

REPORT INFORMATION
  Report Type: 
  Country: None (occurrence: None)
  Receive Date: 20040602
  Receipt Date: 20031001
  Transmission Date: 20050107
  Serious: Yes (Life-Threatening)
  Sender: FDA-Public Use
  Company Number: US-JNJFOC-20031104322

PATIENT
  Age: 71 Year
  Weight: 95.709 kg

DRUGS (4)
  1. PROPULSID [Suspect]
     Indication: DRUG USE FOR UNKNOWN INDICATION
     Dosage: 10 MG, 4 IN 1 DAY
     Dates: start: 19940708
  2. ALDOMET [Concomitant]
  3. THYROXINE (LEVOTHYROXINE SODIUM) [Concomitant]
  4. LANOXIN [Concomitant]

REACTIONS (1)
  - ELECTROCARDIOGRAM QT CORRECTED INTERVAL PROLONGED [None]
